FAERS Safety Report 8289076-1 (Version None)
Quarter: 2012Q2

REPORT INFORMATION
  Report Type: 
  Country: None (occurrence: None)
  Receive Date: 20120417
  Receipt Date: 20120413
  Transmission Date: 20120825
  Serious: Yes (Other)
  Sender: FDA-Public Use
  Company Number: US-BAYER-2012-030690

PATIENT
  Age: 65 Year
  Sex: Male

DRUGS (3)
  1. STERIODS [Concomitant]
  2. NEXAVAR [Suspect]
     Indication: HEPATIC NEOPLASM MALIGNANT
     Dosage: 400 MG, BID
     Dates: start: 20120322
  3. RIFAXIMIN [Concomitant]
     Indication: GASTROINTESTINAL BACTERIAL INFECTION
     Route: 048

REACTIONS (13)
  - ENCEPHALOPATHY [None]
  - NAUSEA [None]
  - FATIGUE [None]
  - FACIAL PAIN [None]
  - CONSTIPATION [None]
  - DYSPHONIA [None]
  - TREMOR [None]
  - DECREASED APPETITE [None]
  - DYSGEUSIA [None]
  - WEIGHT DECREASED [None]
  - CONFUSIONAL STATE [None]
  - ABDOMINAL PAIN UPPER [None]
  - DYSKINESIA [None]
